FAERS Safety Report 5234399-3 (Version None)
Quarter: 2007Q1

REPORT INFORMATION
  Report Type: 
  Country: None (occurrence: None)
  Receive Date: 20070207
  Receipt Date: 20070207
  Transmission Date: 20070707
  Serious: Yes (Other)
  Sender: FDA-Public Use
  Company Number: None

PATIENT
  Age: 46 Year
  Sex: Male
  Weight: 102.1 kg

DRUGS (8)
  1. DEPAKOTE [Suspect]
     Dosage: 1 GM PO TID
     Route: 048
     Dates: start: 20050901, end: 20060901
  2. AMITRIPTYLINE HCL [Concomitant]
  3. ASPIRIN [Concomitant]
  4. GABAPENTIN [Concomitant]
  5. HYDROCHLOROTHIAZIDE [Concomitant]
  6. LEVETIRACETAM [Concomitant]
  7. PHENYTOIN [Concomitant]
  8. SIMVASTATIN [Concomitant]

REACTIONS (3)
  - ASTERIXIS [None]
  - HYPERAMMONAEMIA [None]
  - SEDATION [None]
